FAERS Safety Report 21746073 (Version 3)
Quarter: 2023Q1

REPORT INFORMATION
  Report Type: Report from Study
  Country: US (occurrence: US)
  Receive Date: 20221219
  Receipt Date: 20230118
  Transmission Date: 20230418
  Serious: Yes (Hospitalization)
  Sender: FDA-Public Use
  Company Number: US-ABBVIE-4204076

PATIENT
  Sex: Female
  Weight: 100 kg

DRUGS (8)
  1. HUMIRA [Suspect]
     Active Substance: ADALIMUMAB
     Indication: Psoriatic arthropathy
     Dosage: CF PEN
     Route: 058
     Dates: start: 202203, end: 20221111
  2. HUMIRA [Suspect]
     Active Substance: ADALIMUMAB
     Dosage: CF PEN
     Route: 058
     Dates: start: 20221223
  3. Cartia [Concomitant]
     Indication: Blood disorder prophylaxis
  4. GABAPENTIN [Concomitant]
     Active Substance: GABAPENTIN
     Indication: Polyneuropathy idiopathic progressive
     Dosage: AT NIGHT
  5. OLMESARTAN [Concomitant]
     Active Substance: OLMESARTAN
     Indication: Blood disorder prophylaxis
  6. FOLIC ACID [Concomitant]
     Active Substance: FOLIC ACID
     Indication: Supplementation therapy
  7. METHOTREXATE [Concomitant]
     Active Substance: METHOTREXATE
     Indication: Psoriatic arthropathy
     Route: 058
  8. ROSUVASTATIN [Concomitant]
     Active Substance: ROSUVASTATIN
     Indication: Prophylaxis

REACTIONS (4)
  - Procedural pain [Recovering/Resolving]
  - Spinal pain [Unknown]
  - Back pain [Not Recovered/Not Resolved]
  - Spondylolisthesis [Recovering/Resolving]

NARRATIVE: CASE EVENT DATE: 20220101
